FAERS Safety Report 8446527-7 (Version None)
Quarter: 2012Q2

REPORT INFORMATION
  Report Type: 
  Country: None (occurrence: None)
  Receive Date: 20120618
  Receipt Date: 20120613
  Transmission Date: 20120825
  Serious: Yes (Hospitalization, Other)
  Sender: FDA-Public Use
  Company Number: US-MERCK-1203USA01478

PATIENT
  Age: 56 Year
  Sex: Female

DRUGS (2)
  1. CALCIUM (UNSPECIFIED) [Concomitant]
     Indication: OSTEOPOROSIS
     Route: 065
  2. FOSAMAX [Suspect]
     Indication: OSTEOPOROSIS
     Route: 048
     Dates: start: 19990101

REACTIONS (17)
  - CERVIX CARCINOMA [None]
  - DENTAL CARIES [None]
  - ORAL INFECTION [None]
  - PANCYTOPENIA [None]
  - HYPERTENSION [None]
  - MEDICAL DEVICE COMPLICATION [None]
  - SHORT-BOWEL SYNDROME [None]
  - OSTEONECROSIS OF JAW [None]
  - ADVERSE EVENT [None]
  - BREAST CANCER [None]
  - GASTROINTESTINAL DISORDER [None]
  - TOOTH DISORDER [None]
  - IMPAIRED HEALING [None]
  - TOOTH EXTRACTION [None]
  - RHEUMATOID ARTHRITIS [None]
  - ALCOHOL USE [None]
  - RADIATION INJURY [None]
